FAERS Safety Report 10629677 (Version 1)
Quarter: 2014Q4

REPORT INFORMATION
  Report Type: Spontaneous
  Country: US (occurrence: US)
  Receive Date: 20141205
  Receipt Date: 20141205
  Transmission Date: 20150529
  Serious: No
  Sender: FDA-Public Use
  Company Number: US-BRISTOL-MYERS SQUIBB COMPANY-21577440

PATIENT
  Sex: Female

DRUGS (8)
  1. DEPAKOTE ER [Concomitant]
     Active Substance: DIVALPROEX SODIUM
  2. CLONAZEPAM. [Concomitant]
     Active Substance: CLONAZEPAM
  3. NEURONTIN [Concomitant]
     Active Substance: GABAPENTIN
  4. PRISTIQ EXTENDED RELEASE [Concomitant]
     Active Substance: DESVENLAFAXINE SUCCINATE
  5. PROPANOLOL HYDROCHLORIDE [Concomitant]
     Active Substance: PROPRANOLOL HYDROCHLORIDE
  6. MELOXICAM. [Concomitant]
     Active Substance: MELOXICAM
  7. TRAMADOL HCL [Concomitant]
     Active Substance: TRAMADOL HYDROCHLORIDE
  8. ABILIFY [Suspect]
     Active Substance: ARIPIPRAZOLE

REACTIONS (1)
  - Salivary hypersecretion [Unknown]
